FAERS Safety Report 25493718 (Version 1)
Quarter: 2025Q2

REPORT INFORMATION
  Report Type: Spontaneous
  Country: US (occurrence: None)
  Receive Date: 20250627
  Receipt Date: 20250627
  Transmission Date: 20250717
  Serious: No
  Sender: FDA-CTU
  Company Number: None

PATIENT

DRUGS (2)
  1. GAMUNEX-C [Suspect]
     Active Substance: HUMAN IMMUNOGLOBULIN G
  2. GAMUNEX-C [Suspect]
     Active Substance: HUMAN IMMUNOGLOBULIN G

REACTIONS (8)
  - Product quality issue [None]
  - Product quality issue [None]
  - Nausea [None]
  - Vomiting [None]
  - Pruritus [None]
  - Urticaria [None]
  - Blood pressure increased [None]
  - Diplopia [None]
